FAERS Safety Report 6412575-1 (Version None)
Quarter: 2009Q4

REPORT INFORMATION
  Report Type: 
  Country: None (occurrence: None)
  Receive Date: 20091023
  Receipt Date: 20091014
  Transmission Date: 20100525
  Serious: Yes (Other)
  Sender: FDA-Public Use
  Company Number: BR-ELI_LILLY_AND_COMPANY-BR200910003805

PATIENT
  Age: 57 Year
  Sex: Male
  Weight: 95 kg

DRUGS (1)
  1. BYETTA [Suspect]
     Dosage: 5 UG, 2/D
     Route: 058
     Dates: start: 20090701

REACTIONS (2)
  - HYPOGLYCAEMIA [None]
  - SYNCOPE [None]
